FAERS Safety Report 19861429 (Version 1)
Quarter: 2021Q3

REPORT INFORMATION
  Report Type: Spontaneous
  Country: US (occurrence: US)
  Receive Date: 20210920
  Receipt Date: 20210920
  Transmission Date: 20211014
  Serious: No
  Sender: FDA-Public Use
  Company Number: US-GE HEALTHCARE LIFE SCIENCES-2021CSU003383

PATIENT
  Age: 56 Year
  Sex: Female
  Weight: 61.68 kg

DRUGS (3)
  1. OMNIPAQUE [Suspect]
     Active Substance: IOHEXOL
     Indication: ANGIOGRAM
     Dosage: 64 ML, SINGLE
     Route: 042
     Dates: start: 20210706, end: 20210706
  2. OMNIPAQUE [Suspect]
     Active Substance: IOHEXOL
     Indication: NECK PAIN
  3. OMNIPAQUE [Suspect]
     Active Substance: IOHEXOL
     Indication: FACIAL PARALYSIS

REACTIONS (1)
  - Hypersensitivity [Recovered/Resolved]

NARRATIVE: CASE EVENT DATE: 20210706
